FAERS Safety Report 15113694 (Version 1)
Quarter: 2018Q3

REPORT INFORMATION
  Report Type: Spontaneous
  Country: US (occurrence: US)
  Receive Date: 20180706
  Receipt Date: 20180706
  Transmission Date: 20181010
  Serious: No
  Sender: FDA-Public Use
  Company Number: US-TEVA-2018-US-921011

PATIENT
  Age: 69 Year
  Sex: Male

DRUGS (2)
  1. FEXOFENADINE [Suspect]
     Active Substance: FEXOFENADINE\FEXOFENADINE HYDROCHLORIDE
     Indication: PERENNIAL ALLERGY
     Dosage: 180 MILLIGRAM DAILY; QHS
     Route: 048
     Dates: start: 201805, end: 20180623
  2. FEXOFENADINE [Suspect]
     Active Substance: FEXOFENADINE\FEXOFENADINE HYDROCHLORIDE
     Dosage: 180 MILLIGRAM DAILY; QHS
     Route: 048
     Dates: start: 20180624

REACTIONS (3)
  - Drug administered to patient of inappropriate age [Unknown]
  - Drug effect variable [Unknown]
  - Insomnia [Unknown]

NARRATIVE: CASE EVENT DATE: 201805
